FAERS Safety Report 10105930 (Version 2)
Quarter: 2014Q2

REPORT INFORMATION
  Report Type: Other
  Country: US (occurrence: US)
  Receive Date: 20140424
  Receipt Date: 20140622
  Transmission Date: 20141212
  Serious: Yes (Hospitalization, Other)
  Sender: FDA-Public Use
  Company Number: US-GSKPPD-2014GSK002011

PATIENT
  Age: 44 Year
  Sex: Female

DRUGS (3)
  1. AVANDIA [Suspect]
     Indication: DIABETES MELLITUS
     Route: 048
     Dates: start: 200710
  2. LISINOPRIL [Concomitant]
  3. TOPROL XL [Concomitant]

REACTIONS (2)
  - Myocardial infarction [None]
  - Chest pain [Recovered/Resolved]
